FAERS Safety Report 9503902 (Version 1)
Quarter: 2013Q3

REPORT INFORMATION
  Report Type: Spontaneous
  Country: US (occurrence: None)
  Receive Date: 20130905
  Receipt Date: 20130905
  Transmission Date: 20140515
  Serious: Yes (Other)
  Sender: FDA-Public Use
  Company Number: None

PATIENT
  Age: 30 Year
  Sex: Female
  Weight: 61.24 kg

DRUGS (1)
  1. SEROQUEL STANDARD DOSE [Suspect]
     Indication: BIPOLAR DISORDER
     Dosage: I DON^T REMEMBER  TWICE DAILY  TAKEN BY MOUTH
     Route: 048
     Dates: start: 20100528, end: 20100528

REACTIONS (5)
  - Syncope [None]
  - Hypersomnia [None]
  - Abasia [None]
  - Somnolence [None]
  - Anger [None]
